FAERS Safety Report 10211578 (Version 1)
Quarter: 2014Q2

REPORT INFORMATION
  Report Type: Spontaneous
  Country: US (occurrence: US)
  Receive Date: 20140602
  Receipt Date: 20140602
  Transmission Date: 20141212
  Serious: No
  Sender: FDA-Public Use
  Company Number: US-PFIZER INC-2014150453

PATIENT
  Age: 47 Year
  Sex: Female
  Weight: 56.24 kg

DRUGS (3)
  1. RELPAX [Suspect]
     Indication: MIGRAINE
     Dosage: 20 MG, 2X/DAY
     Dates: start: 201401
  2. VICODIN [Concomitant]
     Indication: INTERVERTEBRAL DISC PROTRUSION
     Dosage: 75/325 MG, 4X/DAY
  3. SOMA [Concomitant]
     Indication: MUSCLE RELAXANT THERAPY
     Dosage: UNK

REACTIONS (1)
  - Drug ineffective [Unknown]
